FAERS Safety Report 16162918 (Version 1)
Quarter: 2019Q2

REPORT INFORMATION
  Report Type: Spontaneous
  Country: US (occurrence: US)
  Receive Date: 20190405
  Receipt Date: 20190405
  Transmission Date: 20190711
  Serious: Yes (Other)
  Sender: FDA-Public Use
  Company Number: US-BRAINTREE LABORATORIES-190176

PATIENT
  Age: 67 Year
  Sex: Female
  Weight: 40.82 kg

DRUGS (1)
  1. SUPREP BOWEL PREP [Suspect]
     Active Substance: MAGNESIUM SULFATE\POTASSIUM SULFATE\SODIUM SULFATE
     Indication: COLONOSCOPY
     Dosage: {2X6 OZ. BOTTLE
     Route: 048
     Dates: start: 20181025, end: 20181026

REACTIONS (8)
  - Vomiting [None]
  - Ocular hyperaemia [None]
  - Haematoma [None]
  - Nausea [None]
  - Eye swelling [None]
  - Dysgeusia [None]
  - Syncope [None]
  - Myalgia [None]

NARRATIVE: CASE EVENT DATE: 20181025
